FAERS Safety Report 13062962 (Version 1)
Quarter: 2016Q4

REPORT INFORMATION
  Report Type: Spontaneous
  Country: CA (occurrence: CA)
  Receive Date: 20161227
  Receipt Date: 20161227
  Transmission Date: 20170207
  Serious: Yes (Other)
  Sender: FDA-Public Use
  Company Number: CA-TEVA-723090ACC

PATIENT
  Age: 49 Year
  Sex: Female

DRUGS (4)
  1. LAMOTRIGINE. [Suspect]
     Active Substance: LAMOTRIGINE
  2. MYLAN-LAMOTRIGINE [Suspect]
     Active Substance: LAMOTRIGINE
  3. TEVA-ATENOL [Suspect]
     Active Substance: ATENOLOL
  4. PMS-LAMOTRIGINE [Suspect]
     Active Substance: LAMOTRIGINE

REACTIONS (4)
  - Urticaria [Unknown]
  - Pruritus [Unknown]
  - Rash [Unknown]
  - Product substitution issue [Unknown]
